FAERS Safety Report 6228852-3 (Version None)
Quarter: 2009Q2

REPORT INFORMATION
  Report Type: 
  Country: None (occurrence: None)
  Receive Date: 20090615
  Receipt Date: 20090608
  Transmission Date: 20091009
  Serious: Yes (Other)
  Sender: FDA-Public Use
  Company Number: BR-ASTRAZENECA-2009UW14818

PATIENT
  Age: 72 Year
  Sex: Male
  Weight: 50 kg

DRUGS (2)
  1. ZOLADEX [Suspect]
     Indication: PROSTATE CANCER
     Route: 058
     Dates: start: 20090304
  2. FLUTAMIDE [Concomitant]
     Route: 065
     Dates: start: 20090331

REACTIONS (7)
  - BACK PAIN [None]
  - CHILLS [None]
  - DYSPNOEA [None]
  - OEDEMA PERIPHERAL [None]
  - OLIGURIA [None]
  - PAIN [None]
  - PYREXIA [None]
